FAERS Safety Report 19708449 (Version 1)
Quarter: 2021Q3

REPORT INFORMATION
  Report Type: Spontaneous
  Country: CN (occurrence: CN)
  Receive Date: 20210817
  Receipt Date: 20210817
  Transmission Date: 20211014
  Serious: Yes (Hospitalization)
  Sender: FDA-Public Use
  Company Number: CN-PFIZER INC-202100999959

PATIENT
  Age: 46 Year
  Sex: Female
  Weight: 53.1 kg

DRUGS (8)
  1. SODIUM CHLORIDE. [Concomitant]
     Active Substance: SODIUM CHLORIDE
     Dosage: 500 ML, 1X/DAY
     Route: 041
     Dates: start: 20210629, end: 20210629
  2. AI SU [Suspect]
     Active Substance: DOCETAXEL
     Indication: INVASIVE DUCTAL BREAST CARCINOMA
     Dosage: 120 MG, 1X/DAY
     Route: 041
     Dates: start: 20210629, end: 20210629
  3. SODIUM CHLORIDE. [Concomitant]
     Active Substance: SODIUM CHLORIDE
     Dosage: 250 ML, 1X/DAY
     Route: 041
     Dates: start: 20210629, end: 20210629
  4. SODIUM CHLORIDE. [Concomitant]
     Active Substance: SODIUM CHLORIDE
     Dosage: 250 ML, 1X/DAY
     Route: 041
     Dates: start: 20210629, end: 20210629
  5. PHARMORUBICIN [Suspect]
     Active Substance: EPIRUBICIN
     Indication: INVASIVE DUCTAL BREAST CARCINOMA
     Dosage: 140 MG, 1X/DAY
     Route: 041
     Dates: start: 20210629, end: 20210629
  6. DEXRAZOXANE. [Concomitant]
     Active Substance: DEXRAZOXANE
     Indication: CHEMOTHERAPY
     Dosage: 1000 MG, 1X/DAY
     Route: 041
     Dates: start: 20210629, end: 20210629
  7. ENDOXAN [CYCLOPHOSPHAMIDE] [Suspect]
     Active Substance: CYCLOPHOSPHAMIDE
     Indication: INVASIVE DUCTAL BREAST CARCINOMA
     Dosage: 0.74 G, 1X/DAY
     Route: 041
     Dates: start: 20210629, end: 20210629
  8. SODIUM CHLORIDE. [Concomitant]
     Active Substance: SODIUM CHLORIDE
     Indication: VEHICLE SOLUTION USE
     Dosage: 134 ML, 1X/DAY
     Route: 041
     Dates: start: 20210629, end: 20210629

REACTIONS (5)
  - Decreased appetite [Recovered/Resolved]
  - Asthenia [Recovered/Resolved]
  - Abdominal distension [Recovered/Resolved]
  - Myelosuppression [Recovering/Resolving]
  - Nausea [Recovered/Resolved]

NARRATIVE: CASE EVENT DATE: 20210707
